FAERS Safety Report 8229711-7 (Version None)
Quarter: 2012Q1

REPORT INFORMATION
  Report Type: 
  Country: None (occurrence: None)
  Receive Date: 20120322
  Receipt Date: 20120320
  Transmission Date: 20120608
  Serious: Yes (Life-Threatening, Hospitalization, Disabling, Other)
  Sender: FDA-Public Use
  Company Number: PHEH2011US05919

PATIENT
  Sex: Female
  Weight: 65.397 kg

DRUGS (22)
  1. LABETALOL [Suspect]
     Dosage: 1 DF, QID
  2. LEVOTHROID [Suspect]
     Dosage: 600 UG, UNK
     Route: 048
  3. SYNTHROID [Concomitant]
     Dosage: 2 DF, QD
  4. ALDACTONE [Concomitant]
     Dosage: 12.5 MG, UNK
  5. LEVOTHROID [Suspect]
     Dosage: 300 UG, UNK
     Route: 048
  6. AMITIZA [Concomitant]
     Dosage: 8 UG, QD
     Route: 048
  7. GILENYA [Suspect]
     Indication: MULTIPLE SCLEROSIS
     Dosage: 0.5 MG, QD
     Route: 048
     Dates: start: 20110606, end: 20111104
  8. CLONIDINE [Concomitant]
     Dosage: UNK UKN, UNK
  9. LABETALOL [Suspect]
     Dosage: 1 DF, Q6H
     Route: 048
  10. ALDACTONE [Concomitant]
     Dosage: 25 MG, UNK
  11. CATAPRES [Suspect]
     Dosage: 0.1 MG, TID (PRN)
     Route: 048
  12. ZESTRIL [Suspect]
     Dosage: 10 MG, BID
  13. PROZAC [Concomitant]
     Dosage: 40 MG, QD
  14. PRILOSEC [Concomitant]
     Dosage: 1 DF, QD
  15. VITAMIN D [Concomitant]
     Dosage: 1000 IU, QD
  16. VALIUM [Concomitant]
     Dosage: 5000 U, QD
  17. LABETALOL [Suspect]
     Dosage: 900 MG, ONCE/SINGLE
     Route: 048
  18. DYAZIDE [Concomitant]
     Indication: CORONARY ARTERY DISEASE
     Dosage: 37.5/25 MG, UNK
  19. LOPRESSOR [Suspect]
     Dosage: 50 MG, TID
     Route: 048
  20. CATAPRES [Suspect]
     Dosage: 0.1 MG, TID (PRN)
     Route: 048
  21. CARDIZEM LA [Suspect]
     Indication: CORONARY ARTERY DISEASE
     Dosage: UNK UKN, UNK
  22. VALIUM [Concomitant]
     Dosage: 10 MG, TID

REACTIONS (12)
  - OVERDOSE [None]
  - BLOOD PRESSURE INCREASED [None]
  - URINARY INCONTINENCE [None]
  - DRUG INEFFECTIVE [None]
  - HYPERTENSIVE CRISIS [None]
  - LABILE HYPERTENSION [None]
  - ATRIOVENTRICULAR BLOCK FIRST DEGREE [None]
  - BRONCHITIS [None]
  - HEADACHE [None]
  - COUGH [None]
  - DYSPNOEA [None]
  - BLOOD POTASSIUM INCREASED [None]
